FAERS Safety Report 21681604 (Version 1)
Quarter: 2022Q4

REPORT INFORMATION
  Report Type: Report from Study
  Country: US (occurrence: US)
  Receive Date: 20221205
  Receipt Date: 20221205
  Transmission Date: 20230113
  Serious: No
  Sender: FDA-Public Use
  Company Number: US-ABBVIE-4190094

PATIENT
  Age: 73 Year
  Sex: Female

DRUGS (1)
  1. HUMIRA [Suspect]
     Active Substance: ADALIMUMAB
     Indication: Crohn^s disease
     Dosage: CF FORM STRENGTH: 40 MG
     Route: 058

REACTIONS (7)
  - Fall [Recovered/Resolved]
  - Fall [Not Recovered/Not Resolved]
  - Joint range of motion decreased [Unknown]
  - Arthralgia [Unknown]
  - Limb injury [Unknown]
  - Pain in extremity [Unknown]
  - Soft tissue injury [Unknown]

NARRATIVE: CASE EVENT DATE: 20221001
